FAERS Safety Report 14114302 (Version 1)
Quarter: 2017Q4

REPORT INFORMATION
  Report Type: Spontaneous
  Country: JP (occurrence: JP)
  Receive Date: 20171023
  Receipt Date: 20171023
  Transmission Date: 20180321
  Serious: Yes (Death)
  Sender: FDA-Public Use
  Company Number: PHJP2017JP031556

PATIENT
  Age: 81 Year
  Sex: Male

DRUGS (1)
  1. IMATINIB [Suspect]
     Active Substance: IMATINIB
     Indication: GASTROINTESTINAL STROMAL TUMOUR
     Dosage: 400 MG, QD
     Route: 048

REACTIONS (11)
  - Tumour lysis syndrome [Fatal]
  - Hepatic function abnormal [Fatal]
  - Renal impairment [Fatal]
  - General physical health deterioration [Fatal]
  - Dysphagia [Fatal]
  - Disseminated intravascular coagulation [Fatal]
  - Hyperuricaemia [Fatal]
  - Multiple organ dysfunction syndrome [Fatal]
  - Blood creatine phosphokinase increased [Fatal]
  - Hyperkalaemia [Fatal]
  - Oedema [Fatal]
